FAERS Safety Report 8816563 (Version 1)
Quarter: 2012Q4

REPORT INFORMATION
  Report Type: Spontaneous
  Country: US (occurrence: None)
  Receive Date: 20121001
  Receipt Date: 20121001
  Transmission Date: 20130627
  Serious: Yes (Hospitalization)
  Sender: FDA-Public Use
  Company Number: None

PATIENT
  Age: 72 Year
  Sex: Female

DRUGS (1)
  1. PROLIA [Suspect]
     Indication: OSTEOPOROSIS
     Dosage: subcutaneous every 6 months
     Route: 058

REACTIONS (4)
  - Fall [None]
  - Spinal fracture [None]
  - Walking aid user [None]
  - General physical health deterioration [None]
